FAERS Safety Report 6108170-4 (Version None)
Quarter: 2009Q1

REPORT INFORMATION
  Report Type: 
  Country: None (occurrence: None)
  Receive Date: 20090309
  Receipt Date: 20090224
  Transmission Date: 20090719
  Serious: Yes (Hospitalization, Other)
  Sender: FDA-Public Use
  Company Number: US-ROCHE-611784

PATIENT
  Sex: Male

DRUGS (2)
  1. PEG-INTERFERON A-2A (RO 25-8310) [Suspect]
     Indication: HEPATITIS C
     Dosage: FORM: PFS, SUSPENDED WEEK 16
     Route: 065
     Dates: start: 20081010, end: 20090123
  2. RIBAVIRIN [Suspect]
     Indication: HEPATITIS C
     Dosage: SUSPENDED WEEK 16
     Route: 065
     Dates: start: 20081010, end: 20090123

REACTIONS (6)
  - ANAEMIA [None]
  - COLLAPSE OF LUNG [None]
  - IMMUNODEFICIENCY [None]
  - PNEUMONIA [None]
  - SMALL CELL LUNG CANCER STAGE UNSPECIFIED [None]
  - WHITE BLOOD CELL COUNT ABNORMAL [None]
